FAERS Safety Report 5299204-8 (Version None)
Quarter: 2007Q2

REPORT INFORMATION
  Report Type: 
  Country: None (occurrence: None)
  Receive Date: 20070411
  Receipt Date: 20070411
  Transmission Date: 20071010
  Serious: Yes (Hospitalization)
  Sender: FDA-Public Use
  Company Number: None

PATIENT
  Sex: Male
  Weight: 69 kg

DRUGS (4)
  1. BEVACIZUMAB (RHUMAB VEGF) [Suspect]
     Dosage: 350 MG
     Dates: start: 20070404
  2. ELOXATIN [Suspect]
     Dosage: 160 MG
     Dates: start: 20070404
  3. FLUOROURACIL [Suspect]
     Dosage: 5250 MG
     Dates: start: 20070406
  4. LEUCOVORIN CALCIUM [Suspect]
     Dosage: 750 MG
     Dates: start: 20070404

REACTIONS (2)
  - HYPERHIDROSIS [None]
  - PAIN [None]
